FAERS Safety Report 10048902 (Version 1)
Quarter: 2014Q1

REPORT INFORMATION
  Report Type: Spontaneous
  Country: US (occurrence: None)
  Receive Date: 20140327
  Receipt Date: 20140327
  Transmission Date: 20141002
  Serious: Yes (Hospitalization)
  Sender: FDA-Public Use
  Company Number: UTC-046109

PATIENT
  Age: 56 Year
  Sex: Female
  Weight: 95.2 kg

DRUGS (2)
  1. TYVASO [Suspect]
     Indication: COR PULMONALE CHRONIC
     Route: 055
     Dates: start: 20140217
  2. ADCIRCA (TADALAFIL) [Concomitant]

REACTIONS (3)
  - Ammonia increased [None]
  - Disorientation [None]
  - Malaise [None]
